FAERS Safety Report 8503349-6 (Version None)
Quarter: 2012Q3

REPORT INFORMATION
  Report Type: 
  Country: None (occurrence: None)
  Receive Date: 20120711
  Receipt Date: 20120709
  Transmission Date: 20120928
  Serious: Yes (Hospitalization)
  Sender: FDA-Public Use
  Company Number: JP-SHIRE-ALL1-2012-03297

PATIENT
  Age: 57 Year
  Sex: Male

DRUGS (17)
  1. PRECIPITATED CALCIUM CARBONATE [Concomitant]
     Dosage: UNK, UNKNOWN
     Route: 048
     Dates: start: 20101009
  2. PRECIPITATED CALCIUM CARBONATE [Concomitant]
     Indication: HYPERPHOSPHATAEMIA
     Dosage: UNK, UNKNOWN
     Route: 048
     Dates: start: 20100227, end: 20100827
  3. PRECIPITATED CALCIUM CARBONATE [Concomitant]
     Dosage: UNK, UNKNOWN
     Route: 048
     Dates: start: 20100828, end: 20101008
  4. BROTIZOLAN [Concomitant]
     Indication: INITIAL INSOMNIA
     Dosage: 0.25 MG, UNKNOWN
     Route: 048
  5. LANTHANUM CARBONATE [Suspect]
     Indication: HYPERPHOSPHATAEMIA
     Dosage: 750 MG, OTHER (IMMEDIATELY AFTER MEALS)
     Route: 048
     Dates: start: 20100116, end: 20100205
  6. LANTHANUM CARBONATE [Suspect]
     Dosage: 1500 MG, OTHER (IMMEDIATELY AFTER MEALS)
     Route: 048
     Dates: start: 20100206, end: 20101126
  7. LANTHANUM CARBONATE [Suspect]
     Dosage: 1000 MG, OTHER (IMMEDIATELY AFTER MEALS)
     Route: 048
     Dates: start: 20101127, end: 20110101
  8. NEO-MINOPHAGEN C [Concomitant]
     Indication: PRODUCT USED FOR UNKNOWN INDICATION
     Dosage: UNK UNK, OTHER 3X/WEEK
     Route: 042
  9. NESPO [Concomitant]
     Indication: PRODUCT USED FOR UNKNOWN INDICATION
     Dosage: 10 ?G, UNKNOWN
     Route: 042
  10. MICARDIS [Concomitant]
     Indication: HYPERTENSIVE HEART DISEASE
     Dosage: UNK, UNKNOWN
     Route: 048
  11. NORVASC [Concomitant]
     Indication: PRODUCT USED FOR UNKNOWN INDICATION
     Dosage: 5 MG, UNKNOWN
     Route: 048
     Dates: start: 20100102
  12. SELBEX [Concomitant]
     Indication: PRODUCT USED FOR UNKNOWN INDICATION
     Dosage: 50 MG, UNKNOWN
     Route: 048
  13. MUCOSOLVAN [Concomitant]
     Indication: PRODUCTIVE COUGH
     Dosage: UNK, UNKNOWN
     Route: 048
  14. ALLEGRA [Concomitant]
     Indication: PRODUCT USED FOR UNKNOWN INDICATION
     Dosage: UNK, UNKNOWN
     Route: 048
  15. TAMSULOSIN HCL [Concomitant]
     Indication: PRODUCT USED FOR UNKNOWN INDICATION
     Dosage: 0.2 MG, UNKNOWN
     Route: 048
  16. OMEPRAZOLE [Concomitant]
     Indication: PRODUCT USED FOR UNKNOWN INDICATION
     Dosage: 10 MG, UNKNOWN
     Route: 048
  17. PURSENNID                          /00142207/ [Concomitant]
     Indication: PRODUCT USED FOR UNKNOWN INDICATION
     Dosage: 36 MG, UNKNOWN
     Route: 048
     Dates: start: 20100116

REACTIONS (1)
  - SMALL INTESTINAL PERFORATION [None]
